FAERS Safety Report 10657509 (Version 1)
Quarter: 2014Q4

REPORT INFORMATION
  Report Type: Spontaneous
  Country: CA (occurrence: None)
  Receive Date: 20141215
  Receipt Date: 20141215
  Transmission Date: 20150529
  Serious: No
  Sender: FDA-Public Use
  Company Number: A1089956A

PATIENT
  Sex: 0

DRUGS (1)
  1. PAROXETINE HYDROCHLORIDE TABLETS [Suspect]
     Active Substance: PAROXETINE HYDROCHLORIDE
     Indication: PRODUCT USED FOR UNKNOWN INDICATION

REACTIONS (2)
  - International normalised ratio abnormal [None]
  - Factor VII deficiency [None]
